FAERS Safety Report 17351600 (Version 2)
Quarter: 2020Q3

REPORT INFORMATION
  Report Type: Spontaneous
  Country: CA (occurrence: CA)
  Receive Date: 20200130
  Receipt Date: 20200708
  Transmission Date: 20201102
  Serious: Yes (Death, Other)
  Sender: FDA-Public Use
  Company Number: CA-TEVA-2020-CA-1176700

PATIENT
  Age: 33 Year
  Sex: Female

DRUGS (27)
  1. ETOPOSIDE. [Suspect]
     Active Substance: ETOPOSIDE
     Indication: RECURRENT CANCER
     Route: 065
  2. ETOPOSIDE. [Suspect]
     Active Substance: ETOPOSIDE
     Indication: CHORIOCARCINOMA
     Route: 065
  3. GEMCITABINE HYDROCHLORIDE. [Suspect]
     Active Substance: GEMCITABINE HYDROCHLORIDE
     Indication: RECURRENT CANCER
     Route: 065
  4. VINCRISTINE SULFATE. [Suspect]
     Active Substance: VINCRISTINE SULFATE
     Indication: CHORIOCARCINOMA
     Route: 065
  5. PROCYTOX [Suspect]
     Active Substance: CYCLOPHOSPHAMIDE
     Indication: METASTASES TO SKIN
     Route: 065
  6. PROCYTOX [Suspect]
     Active Substance: CYCLOPHOSPHAMIDE
     Indication: METASTASES TO CENTRAL NERVOUS SYSTEM
     Route: 065
  7. PROCYTOX [Suspect]
     Active Substance: CYCLOPHOSPHAMIDE
     Indication: CHORIOCARCINOMA
     Route: 065
  8. TAXOL [Suspect]
     Active Substance: PACLITAXEL
     Indication: RECURRENT CANCER
     Route: 065
  9. GEMCITABINE HYDROCHLORIDE. [Suspect]
     Active Substance: GEMCITABINE HYDROCHLORIDE
     Indication: CHORIOCARCINOMA
     Route: 065
  10. METHOTREXATE. [Suspect]
     Active Substance: METHOTREXATE
     Indication: CHORIOCARCINOMA
     Route: 065
  11. CISPLATIN. [Suspect]
     Active Substance: CISPLATIN
     Indication: RECURRENT CANCER
     Route: 065
  12. CISPLATIN. [Suspect]
     Active Substance: CISPLATIN
     Indication: CHORIOCARCINOMA
     Route: 065
  13. DACTINOMYCIN [Suspect]
     Active Substance: DACTINOMYCIN
     Indication: RECURRENT CANCER
     Route: 065
  14. PEGYLATED LIPOSOMAL DOXORUBICIN HYDROCHLORIDE [Suspect]
     Active Substance: DOXORUBICIN HYDROCHLORIDE
     Indication: RECURRENT CANCER
     Route: 065
  15. PROCYTOX [Suspect]
     Active Substance: CYCLOPHOSPHAMIDE
     Indication: METASTASES TO LUNG
     Route: 065
  16. TAXOTERE [Suspect]
     Active Substance: DOCETAXEL
     Indication: INVASIVE DUCTAL BREAST CARCINOMA
     Route: 065
  17. VINCRISTINE SULFATE. [Suspect]
     Active Substance: VINCRISTINE SULFATE
     Indication: METASTASES TO LUNG
     Route: 065
  18. VINCRISTINE SULFATE. [Suspect]
     Active Substance: VINCRISTINE SULFATE
     Indication: METASTASES TO CENTRAL NERVOUS SYSTEM
     Route: 065
  19. DOXORUBICIN LIPOSOMAL [Suspect]
     Active Substance: DOXORUBICIN
     Indication: INVASIVE DUCTAL BREAST CARCINOMA
     Route: 065
  20. ADRIAMYCIN [Suspect]
     Active Substance: DOXORUBICIN HYDROCHLORIDE
     Indication: INVASIVE DUCTAL BREAST CARCINOMA
     Route: 065
  21. DACTINOMYCIN [Suspect]
     Active Substance: DACTINOMYCIN
     Indication: CHORIOCARCINOMA
     Route: 065
  22. PEGYLATED LIPOSOMAL DOXORUBICIN HYDROCHLORIDE [Suspect]
     Active Substance: DOXORUBICIN HYDROCHLORIDE
     Indication: CHORIOCARCINOMA
     Route: 065
  23. TAXOL [Suspect]
     Active Substance: PACLITAXEL
     Indication: CHORIOCARCINOMA
     Route: 065
  24. TRASTUZUMAB. [Suspect]
     Active Substance: TRASTUZUMAB
     Indication: INVASIVE DUCTAL BREAST CARCINOMA
     Route: 065
  25. METHOTREXATE. [Suspect]
     Active Substance: METHOTREXATE
     Indication: RECURRENT CANCER
     Route: 065
  26. VINCRISTINE SULFATE. [Suspect]
     Active Substance: VINCRISTINE SULFATE
     Indication: METASTASES TO SKIN
     Route: 065
  27. COSMEGEN [Suspect]
     Active Substance: DACTINOMYCIN
     Indication: CHORIOCARCINOMA
     Route: 065

REACTIONS (3)
  - Acute myeloid leukaemia [Fatal]
  - Product use in unapproved indication [Fatal]
  - Second primary malignancy [Fatal]
